FAERS Safety Report 5397588-3 (Version None)
Quarter: 2007Q3

REPORT INFORMATION
  Report Type: 
  Country: None (occurrence: None)
  Receive Date: 20070726
  Receipt Date: 20070717
  Transmission Date: 20080115
  Serious: Yes (Hospitalization, Other)
  Sender: FDA-Public Use
  Company Number: US-ROCHE-460904

PATIENT
  Age: 55 Year
  Sex: Male

DRUGS (9)
  1. PEGASYS [Suspect]
     Indication: HEPATITIS C
     Dosage: FORM REPORTED AS PREFILLED SYRINGE.
     Route: 058
     Dates: start: 20060331, end: 20070302
  2. RIBAVIRIN [Suspect]
     Indication: HEPATITIS C
     Route: 048
     Dates: start: 20060331, end: 20070302
  3. DIAZEPAM [Suspect]
     Indication: DRUG USE FOR UNKNOWN INDICATION
     Route: 065
  4. PHENCYCLIDINE [Suspect]
     Indication: DRUG USE FOR UNKNOWN INDICATION
     Route: 065
  5. NEURONTIN [Suspect]
     Indication: DRUG USE FOR UNKNOWN INDICATION
     Route: 065
  6. ANTIDEPRESSANT NOS [Concomitant]
     Indication: ANTIDEPRESSANT THERAPY
  7. UNSPECIFIED DRUG [Concomitant]
     Dosage: DRUG REPORTED AS CHRONIC PAIN MEDICATION (NOS).
  8. NORCO [Concomitant]
  9. PROZAC [Concomitant]
     Dates: start: 20061201

REACTIONS (39)
  - ABASIA [None]
  - ANAEMIA [None]
  - ANGER [None]
  - ANXIETY [None]
  - ASTHENIA [None]
  - CHEST PAIN [None]
  - CONFUSIONAL STATE [None]
  - COORDINATION ABNORMAL [None]
  - DISORIENTATION [None]
  - DISTURBANCE IN ATTENTION [None]
  - DIZZINESS [None]
  - DRUG ADMINISTRATION ERROR [None]
  - DYSPNOEA [None]
  - EXPIRED DRUG ADMINISTERED [None]
  - FEELING ABNORMAL [None]
  - FLANK PAIN [None]
  - HYPERHIDROSIS [None]
  - HYPOAESTHESIA [None]
  - INGUINAL HERNIA [None]
  - INITIAL INSOMNIA [None]
  - INJECTION SITE SWELLING [None]
  - INSOMNIA [None]
  - IRRITABILITY [None]
  - JUDGEMENT IMPAIRED [None]
  - MALAISE [None]
  - MEMORY IMPAIRMENT [None]
  - MYOCARDIAL INFARCTION [None]
  - NEUROPATHY PERIPHERAL [None]
  - NO THERAPEUTIC RESPONSE [None]
  - OEDEMA PERIPHERAL [None]
  - PAIN [None]
  - SMOKER [None]
  - SUICIDAL IDEATION [None]
  - TESTICULAR SWELLING [None]
  - THINKING ABNORMAL [None]
  - TREATMENT FAILURE [None]
  - TREMOR [None]
  - VIRAL LOAD INCREASED [None]
  - WRONG TECHNIQUE IN DRUG USAGE PROCESS [None]
